FAERS Safety Report 12803427 (Version 3)
Quarter: 2019Q1

REPORT INFORMATION
  Report Type: Spontaneous
  Country: US (occurrence: US)
  Receive Date: 20161003
  Receipt Date: 20190206
  Transmission Date: 20190417
  Serious: Yes (Other)
  Sender: FDA-Public Use
  Company Number: US-SA-2016SA178843

PATIENT
  Age: 81 Year
  Sex: Female
  Weight: 60 kg

DRUGS (4)
  1. LANTUS [Suspect]
     Active Substance: INSULIN GLARGINE
     Dosage: 23 U, HS
     Route: 065
  2. LANTUS [Suspect]
     Active Substance: INSULIN GLARGINE
     Indication: TYPE 2 DIABETES MELLITUS
     Dosage: 13 DF,QD
     Route: 065
  3. LANTUS [Suspect]
     Active Substance: INSULIN GLARGINE
     Dosage: 12 U, IN THE MORNING
     Route: 058
  4. VITAMINS NOS [Concomitant]
     Active Substance: VITAMINS
     Dosage: UNK
     Route: 065

REACTIONS (7)
  - Breast cancer [Unknown]
  - Bladder disorder [Unknown]
  - Drug ineffective [Unknown]
  - Uterine cancer [Unknown]
  - Sensitisation [Unknown]
  - Weight decreased [Unknown]
  - Device operational issue [Unknown]

NARRATIVE: CASE EVENT DATE: 20100615
